FAERS Safety Report 12571672 (Version 2)
Quarter: 2016Q3

REPORT INFORMATION
  Report Type: Spontaneous
  Country: US (occurrence: US)
  Receive Date: 20160719
  Receipt Date: 20160719
  Transmission Date: 20161109
  Serious: Yes (Other)
  Sender: FDA-Public Use
  Company Number: US-ACTAVIS-2016-15637

PATIENT
  Age: 64 Year
  Sex: Female

DRUGS (2)
  1. CARBOPLATIN (WATSON LABORATORIES) [Suspect]
     Active Substance: CARBOPLATIN
     Indication: UTERINE CANCER
     Dosage: 3 ROUNDS OF THERAPY
     Route: 065
  2. PACLITAXEL (ATLLC) [Suspect]
     Active Substance: PACLITAXEL
     Indication: UTERINE CANCER
     Dosage: 3 ROUNDS OF THERAPY
     Route: 065

REACTIONS (1)
  - Eczema asteatotic [Unknown]
